FAERS Safety Report 14400497 (Version 3)
Quarter: 2025Q1

REPORT INFORMATION
  Report Type: Spontaneous
  Country: US (occurrence: US)
  Receive Date: 20180117
  Receipt Date: 20250305
  Transmission Date: 20250409
  Serious: Yes (Other)
  Sender: ABBVIE
  Company Number: US-ABBVIE-18K-163-2223400-00

PATIENT
  Age: 68 Year
  Sex: Female

DRUGS (7)
  1. HUMIRA [Suspect]
     Active Substance: ADALIMUMAB
     Indication: Product used for unknown indication
     Route: 058
  2. XELJANZ XR [Suspect]
     Active Substance: TOFACITINIB CITRATE
     Indication: Osteoarthritis
     Route: 048
     Dates: start: 201701
  3. ENBREL [Suspect]
     Active Substance: ETANERCEPT
     Indication: Rheumatoid arthritis
     Route: 065
  4. ORENCIA [Suspect]
     Active Substance: ABATACEPT
     Indication: Product used for unknown indication
     Route: 065
  5. SIMPONI [Suspect]
     Active Substance: GOLIMUMAB
     Indication: Arthritis
     Route: 065
  6. CELEXA [Concomitant]
     Active Substance: CITALOPRAM HYDROBROMIDE
     Indication: Depression
  7. MELOXICAM [Concomitant]
     Active Substance: MELOXICAM
     Indication: Antiinflammatory therapy
     Dates: start: 201710

REACTIONS (21)
  - Knee arthroplasty [Recovered/Resolved]
  - Lung disorder [Unknown]
  - Arthropathy [Unknown]
  - Shoulder arthroplasty [Unknown]
  - Injury [Unknown]
  - Upper respiratory tract infection [Not Recovered/Not Resolved]
  - Hip arthroplasty [Unknown]
  - Weight increased [Not Recovered/Not Resolved]
  - Body height decreased [Unknown]
  - Fall [Unknown]
  - Peripheral swelling [Unknown]
  - Dyspnoea exertional [Unknown]
  - Pneumonia [Recovered/Resolved]
  - Mobility decreased [Unknown]
  - Pain [Unknown]
  - Neck pain [Unknown]
  - Pain in extremity [Unknown]
  - Drug ineffective [Unknown]
  - Drug ineffective [Unknown]
  - Drug ineffective [Unknown]
  - Post procedural infection [Unknown]

NARRATIVE: CASE EVENT DATE: 20150101
